FAERS Safety Report 4756535-5 (Version None)
Quarter: 2005Q3

REPORT INFORMATION
  Report Type: 
  Country: None (occurrence: None)
  Receive Date: 20050830
  Receipt Date: 20050725
  Transmission Date: 20060218
  Serious: No
  Sender: FDA-Public Use
  Company Number: US-GLAXOSMITHKLINE-A0567577A

PATIENT
  Age: 45 Year
  Sex: Female

DRUGS (2)
  1. WELLBUTRIN XL [Suspect]
     Indication: DEPRESSION
     Dosage: 300MGK PER DAY
     Route: 048
  2. UNKNOWN [Concomitant]

REACTIONS (2)
  - DIARRHOEA [None]
  - STOOL ANALYSIS ABNORMAL [None]
